FAERS Safety Report 9858348 (Version 2)
Quarter: 2014Q1

REPORT INFORMATION
  Report Type: Spontaneous
  Country: JP (occurrence: JP)
  Receive Date: 20140131
  Receipt Date: 20140213
  Transmission Date: 20141002
  Serious: Yes (Other)
  Sender: FDA-Public Use
  Company Number: JP-JNJFOC-20140117533

PATIENT
  Age: 87 Year
  Sex: Male
  Weight: 59 kg

DRUGS (11)
  1. TRAMCET [Suspect]
     Indication: PRODUCT USED FOR UNKNOWN INDICATION
     Dosage: FOR 28 DAYS
     Route: 048
     Dates: start: 20131226
  2. TRAMCET [Suspect]
     Indication: PRODUCT USED FOR UNKNOWN INDICATION
     Dosage: FOR 7 DAYS
     Route: 048
     Dates: start: 20131219
  3. TRAMCET [Suspect]
     Indication: PRODUCT USED FOR UNKNOWN INDICATION
     Dosage: 3 PER DAY
     Route: 048
     Dates: start: 20131213, end: 20140116
  4. ARICEPT [Concomitant]
     Indication: DEMENTIA ALZHEIMER^S TYPE
     Dosage: 1 PER 1 DAY
     Route: 048
  5. LOSARTAN POTASSIUM [Concomitant]
     Indication: HYPERTENSION
     Dosage: 1 PER 1 DAY
     Route: 048
  6. EPINASTINE [Concomitant]
     Indication: ASTHMA
     Dosage: 1 PER 1 DAY
     Route: 048
  7. TAMSULOSIN [Concomitant]
     Indication: BENIGN PROSTATIC HYPERPLASIA
     Dosage: 1 PER 1 DAY
     Route: 048
  8. CIRCANETTEN [Concomitant]
     Indication: HAEMORRHOIDS
     Dosage: 3 PER 1 DAY
     Route: 048
  9. MAGMITT [Concomitant]
     Indication: CONSTIPATION
     Dosage: 2 PER 1 DAY
     Route: 048
  10. PRIMPERAN [Concomitant]
     Route: 065
  11. TEPRENONE [Concomitant]
     Indication: GASTRIC ULCER
     Dosage: 3 PER 1 DAY
     Route: 048
     Dates: start: 20130220

REACTIONS (1)
  - Rhabdomyolysis [Recovered/Resolved]
